FAERS Safety Report 5747440-6 (Version None)
Quarter: 2008Q2

REPORT INFORMATION
  Report Type: 
  Country: None (occurrence: None)
  Receive Date: 20080523
  Receipt Date: 20080523
  Transmission Date: 20081010
  Serious: Yes (Life-Threatening)
  Sender: FDA-Public Use
  Company Number: None

PATIENT
  Sex: Female
  Weight: 56.6 kg

DRUGS (10)
  1. HEPARIN SODIUM [Suspect]
     Indication: ANTICOAGULANT THERAPY
     Dosage: 5000 UNITS ONCE IV BOLUS
     Route: 040
     Dates: start: 20080519, end: 20080519
  2. CEFAZOLIN [Concomitant]
  3. PROTAMINE SULFATE [Concomitant]
  4. BUPIVACAINE-EPI [Concomitant]
  5. BUPIVACAINE [Concomitant]
  6. FENTANYL [Concomitant]
  7. LIDOCAINE [Concomitant]
  8. DIAZEPAM [Concomitant]
  9. MORPHINE [Concomitant]
  10. SODIUM BICARB [Concomitant]

REACTIONS (4)
  - BLOOD PRESSURE DIASTOLIC DECREASED [None]
  - CARDIO-RESPIRATORY ARREST [None]
  - VENTRICULAR FIBRILLATION [None]
  - VENTRICULAR TACHYCARDIA [None]
